FAERS Safety Report 11222976 (Version 1)
Quarter: 2015Q2

REPORT INFORMATION
  Report Type: Spontaneous
  Country: US (occurrence: US)
  Receive Date: 20150626
  Receipt Date: 20150626
  Transmission Date: 20150821
  Serious: No
  Sender: FDA-Public Use
  Company Number: US-BAXALTA-2015BLT000008

PATIENT
  Age: 39 Year
  Sex: Female

DRUGS (2)
  1. HYQVIA [Suspect]
     Active Substance: HUMAN IMMUNOGLOBULIN G\HYALURONIDASE RECOMBINANT HUMAN
     Indication: HYPOGAMMAGLOBULINAEMIA
     Dosage: UNK
     Route: 058
     Dates: start: 2015
  2. HYQVIA [Suspect]
     Active Substance: HUMAN IMMUNOGLOBULIN G\HYALURONIDASE RECOMBINANT HUMAN
     Dosage: 650 ML, LAST DOSE OF RAMP UP
     Route: 058
     Dates: start: 20150601

REACTIONS (4)
  - Pain [Recovered/Resolved]
  - Gait disturbance [Recovered/Resolved]
  - Infusion site erythema [Recovered/Resolved]
  - Infusion site extravasation [Unknown]

NARRATIVE: CASE EVENT DATE: 20150601
